FAERS Safety Report 7378955-5 (Version None)
Quarter: 2011Q1

REPORT INFORMATION
  Report Type: 
  Country: None (occurrence: None)
  Receive Date: 20110328
  Receipt Date: 20110324
  Transmission Date: 20110831
  Serious: Yes (Death)
  Sender: FDA-Public Use
  Company Number: PHHY2010AU85966

PATIENT
  Age: 74 Year
  Sex: Male

DRUGS (7)
  1. MIRTAZAPINE [Suspect]
     Indication: MAJOR DEPRESSION
     Dosage: 15 MG
  2. OLANZAPINE [Suspect]
     Indication: MAJOR DEPRESSION
     Dosage: 2.5 MG
  3. DONEPEZIL HCL [Suspect]
     Indication: DEMENTIA WITH LEWY BODIES
     Dosage: 5 MG, UNK
  4. OLANZAPINE [Suspect]
     Dosage: 2.5 MG, BID
  5. LORAZEPAM [Suspect]
     Indication: AGITATION
  6. MIRTAZAPINE [Suspect]
     Dosage: 30 MG, BID
  7. QUETIAPINE [Suspect]
     Dosage: 25 MG, BID

REACTIONS (4)
  - CONFUSIONAL STATE [None]
  - CEREBRAL HAEMORRHAGE [None]
  - SOMNOLENCE [None]
  - HEADACHE [None]
